FAERS Safety Report 12975292 (Version 1)
Quarter: 2016Q4

REPORT INFORMATION
  Report Type: Spontaneous
  Country: US (occurrence: US)
  Receive Date: 20161123
  Receipt Date: 20161123
  Transmission Date: 20170207
  Serious: Yes (Life-Threatening, Hospitalization, Other)
  Sender: FDA-Public Use
  Company Number: None

PATIENT
  Age: 12 Year
  Sex: Female
  Weight: 45.8 kg

DRUGS (1)
  1. ZYLET [Suspect]
     Active Substance: LOTEPREDNOL ETABONATE\TOBRAMYCIN
     Route: 047

REACTIONS (8)
  - Stevens-Johnson syndrome [None]
  - Eye pain [None]
  - Oral mucosal blistering [None]
  - Skin lesion [None]
  - Eye pruritus [None]
  - Pyrexia [None]
  - Ocular hyperaemia [None]
  - Genital labial adhesions [None]

NARRATIVE: CASE EVENT DATE: 20161119
